FAERS Safety Report 8577002-7 (Version None)
Quarter: 2012Q3

REPORT INFORMATION
  Report Type: 
  Country: None (occurrence: None)
  Receive Date: 20120807
  Receipt Date: 20120726
  Transmission Date: 20120928
  Serious: Yes (Life-Threatening, Hospitalization, Disabling)
  Sender: FDA-Public Use
  Company Number: CA-FRI-1000029697

PATIENT
  Age: 50 Year
  Sex: Male
  Weight: 81.6 kg

DRUGS (11)
  1. KEMADRIN [Concomitant]
  2. TEVA-PANTOPRAZOLE [Concomitant]
  3. ZYPREXA [Concomitant]
  4. RIVOTRIL [Concomitant]
  5. CYMBALTA [Suspect]
     Indication: MAJOR DEPRESSION
     Dates: start: 20100702, end: 20100728
  6. ESCITALOPRAM [Suspect]
  7. CYMBALTA [Suspect]
     Dates: start: 20100729, end: 20111106
  8. CLONAZEPAM [Concomitant]
  9. PANTOPRAZOLE SODIUM [Concomitant]
  10. PMS-PROCYCLIDINE [Concomitant]
  11. TOPIRAMATE [Concomitant]

REACTIONS (5)
  - CARDIAC DISORDER [None]
  - CONFUSIONAL STATE [None]
  - CONDITION AGGRAVATED [None]
  - AGGRESSION [None]
  - BIPOLAR DISORDER [None]
